FAERS Safety Report 16752109 (Version 1)
Quarter: 2019Q3

REPORT INFORMATION
  Report Type: Spontaneous
  Country: US (occurrence: US)
  Receive Date: 20190828
  Receipt Date: 20190828
  Transmission Date: 20191005
  Serious: Yes (Other)
  Sender: FDA-Public Use
  Company Number: US-TEVA-2019-US-1101468

PATIENT
  Sex: Female

DRUGS (1)
  1. PIMOZIDE. [Suspect]
     Active Substance: PIMOZIDE
     Indication: PRODUCT USED FOR UNKNOWN INDICATION
     Route: 065

REACTIONS (5)
  - Malignant melanoma [Unknown]
  - Constipation [Unknown]
  - Depression [Unknown]
  - Blood prolactin increased [Unknown]
  - Memory impairment [Unknown]
